FAERS Safety Report 5790168-7 (Version None)
Quarter: 2008Q2

REPORT INFORMATION
  Report Type: 
  Country: None (occurrence: None)
  Receive Date: 20080626
  Receipt Date: 20080324
  Transmission Date: 20081010
  Serious: No
  Sender: FDA-Public Use
  Company Number: A0702955A

PATIENT
  Age: 65 Year
  Sex: Male
  Weight: 96.4 kg

DRUGS (1)
  1. ALLI [Suspect]
     Indication: WEIGHT LOSS DIET
     Dosage: 1CAP PER DAY
     Route: 048
     Dates: start: 20071220, end: 20071222

REACTIONS (12)
  - ABDOMINAL DISCOMFORT [None]
  - ANXIETY [None]
  - BLOOD URINE PRESENT [None]
  - DIARRHOEA [None]
  - ESCHERICHIA URINARY TRACT INFECTION [None]
  - FAECAL VOLUME DECREASED [None]
  - FLATULENCE [None]
  - FREQUENT BOWEL MOVEMENTS [None]
  - PROSTATOMEGALY [None]
  - RENAL DISORDER [None]
  - URINARY TRACT DISORDER [None]
  - URINE ODOUR ABNORMAL [None]
